FAERS Safety Report 18735779 (Version 2)
Quarter: 2021Q1

REPORT INFORMATION
  Report Type: Spontaneous
  Country: AR (occurrence: AR)
  Receive Date: 20210113
  Receipt Date: 20210211
  Transmission Date: 20210419
  Serious: Yes (Other)
  Sender: FDA-Public Use
  Company Number: AR-PFIZER INC-2021010903

PATIENT
  Age: 74 Year
  Sex: Male

DRUGS (2)
  1. SUTENT [Suspect]
     Active Substance: SUNITINIB MALATE
     Indication: METASTATIC RENAL CELL CARCINOMA
     Dosage: 25 MG, CYCLIC (DAILY, SCHEME 4/2)
     Dates: start: 20190204
  2. SUTENT [Suspect]
     Active Substance: SUNITINIB MALATE
     Dosage: TOOK THE MEDICATION FOR THREE MONTHS AND THEN HE RESTED ONE MONTH

REACTIONS (1)
  - COVID-19 [Unknown]

NARRATIVE: CASE EVENT DATE: 20201212
